FAERS Safety Report 5238287-8 (Version None)
Quarter: 2007Q1

REPORT INFORMATION
  Report Type: 
  Country: None (occurrence: None)
  Receive Date: 20070209
  Receipt Date: 20070209
  Transmission Date: 20070707
  Serious: No
  Sender: FDA-Public Use
  Company Number: None

PATIENT
  Age: 43 Year
  Sex: Female

DRUGS (10)
  1. XELODA [Suspect]
     Indication: BREAST CANCER
     Dosage: 500MG 3PO QAM AND 2 PO
     Route: 048
     Dates: start: 20060714, end: 20070119
  2. MULTI-VITAMIN [Concomitant]
  3. CALTRATE [Concomitant]
  4. VITAMIN E [Concomitant]
  5. ZOMETA [Concomitant]
  6. IBUPROFEN [Concomitant]
  7. VICODIN [Concomitant]
  8. AVASTIN [Concomitant]
  9. HYZAAR [Concomitant]
  10. DIOVAN [Concomitant]

REACTIONS (2)
  - ABDOMINAL PAIN [None]
  - ABDOMINAL TENDERNESS [None]
